FAERS Safety Report 11838337 (Version 14)
Quarter: 2019Q1

REPORT INFORMATION
  Report Type: Spontaneous
  Country: US (occurrence: US)
  Receive Date: 20151215
  Receipt Date: 20190124
  Transmission Date: 20190417
  Serious: No
  Sender: FDA-Public Use
  Company Number: US-ACTELION PHARMACEUTICALS US, INC.-A-NJ2014-110913

PATIENT
  Age: 57 Year
  Sex: Male
  Weight: 63.49 kg

DRUGS (5)
  1. VELETRI [Suspect]
     Active Substance: EPOPROSTENOL
     Dosage: 36.6 NG/KG, PER MIN
     Route: 042
  2. LETAIRIS [Suspect]
     Active Substance: AMBRISENTAN
     Indication: PRODUCT USED FOR UNKNOWN INDICATION
     Route: 065
  3. VELETRI [Suspect]
     Active Substance: EPOPROSTENOL
     Indication: PULMONARY ARTERIAL HYPERTENSION
     Dosage: 37.5 NG/KG, PER MIN
     Route: 042
     Dates: start: 20140224
  4. VELETRI [Suspect]
     Active Substance: EPOPROSTENOL
     Dosage: 37.1 NG/KG, PER MIN
     Route: 042
  5. VELETRI [Suspect]
     Active Substance: EPOPROSTENOL
     Dosage: 33.2 NG/KG, PER MIN
     Route: 042

REACTIONS (30)
  - Device damage [Unknown]
  - Catheter site infection [Recovering/Resolving]
  - Device dislocation [Unknown]
  - Ear infection [Unknown]
  - Orchitis [Unknown]
  - Ear congestion [Unknown]
  - Flushing [Unknown]
  - Catheter site scab [Unknown]
  - Fungal infection [Recovering/Resolving]
  - Neuralgia [Unknown]
  - Rash [Unknown]
  - Catheter site erythema [Recovering/Resolving]
  - Peripheral swelling [Unknown]
  - Catheter site swelling [Recovering/Resolving]
  - Staphylococcal infection [Recovering/Resolving]
  - Catheter site inflammation [Recovering/Resolving]
  - Catheter site discharge [Unknown]
  - Unevaluable event [Unknown]
  - Cough [Unknown]
  - Generalised erythema [Unknown]
  - Hyperhidrosis [Unknown]
  - Pain in jaw [Unknown]
  - Vertigo [Unknown]
  - Furuncle [Not Recovered/Not Resolved]
  - Fall [Unknown]
  - Dyspnoea exertional [Unknown]
  - Catheter site pain [Recovering/Resolving]
  - Catheter site pruritus [Unknown]
  - Joint injury [Unknown]
  - Malaise [Unknown]

NARRATIVE: CASE EVENT DATE: 20141227
